FAERS Safety Report 5990732-6 (Version None)
Quarter: 2008Q4

REPORT INFORMATION
  Report Type: 
  Country: None (occurrence: None)
  Receive Date: 20081211
  Receipt Date: 20081205
  Transmission Date: 20090506
  Serious: Yes (Death, Hospitalization, Other)
  Sender: FDA-Public Use
  Company Number: PHHY2008DE25610

PATIENT
  Sex: Male
  Weight: 61 kg

DRUGS (3)
  1. GLEEVEC [Suspect]
     Indication: CHRONIC MYELOID LEUKAEMIA
     Dosage: 400 MG DAILY
     Route: 048
     Dates: start: 20020317, end: 20060602
  2. GLEEVEC [Suspect]
     Dosage: 600 MG DAILY
     Route: 048
     Dates: start: 20060603
  3. MINIASAL [Concomitant]
     Dosage: 30 MG DAILY
     Dates: start: 20061220

REACTIONS (9)
  - ANAEMIA [None]
  - COLITIS [None]
  - DRUG INEFFECTIVE [None]
  - HEADACHE [None]
  - PNEUMONIA [None]
  - PROSTATE CANCER [None]
  - RIGHT VENTRICULAR FAILURE [None]
  - TOOTH EXTRACTION [None]
  - VIRAL INFECTION [None]
